FAERS Safety Report 14623866 (Version 1)
Quarter: 2018Q1

REPORT INFORMATION
  Report Type: Spontaneous
  Country: US (occurrence: US)
  Receive Date: 20180309
  Receipt Date: 20180309
  Transmission Date: 20180509
  Serious: No
  Sender: FDA-Public Use
  Company Number: None

PATIENT
  Age: 79 Year
  Sex: Male

DRUGS (1)
  1. NIVOLUMAB [Suspect]
     Active Substance: NIVOLUMAB
     Indication: SMALL CELL LUNG CANCER
     Dates: start: 20171026, end: 20171228

REACTIONS (4)
  - Autoimmune thyroiditis [None]
  - Decreased appetite [None]
  - Fatigue [None]
  - Dry mouth [None]

NARRATIVE: CASE EVENT DATE: 20180111
